FAERS Safety Report 20175307 (Version 3)
Quarter: 2022Q2

REPORT INFORMATION
  Report Type: Spontaneous
  Country: JP (occurrence: JP)
  Receive Date: 20211213
  Receipt Date: 20220624
  Transmission Date: 20220721
  Serious: No
  Sender: FDA-Public Use
  Company Number: JP-TAKEDA-2021TJP125703

PATIENT
  Age: 60 Year
  Sex: Male

DRUGS (9)
  1. CABOMETYX [Suspect]
     Active Substance: CABOZANTINIB S-MALATE
     Indication: Renal cancer metastatic
     Dosage: 40 MG, QD
     Route: 048
     Dates: start: 20210819, end: 20210825
  2. CABOMETYX [Suspect]
     Active Substance: CABOZANTINIB S-MALATE
     Dosage: 60 MG, QD
     Route: 048
     Dates: start: 20210826, end: 20210831
  3. CABOMETYX [Suspect]
     Active Substance: CABOZANTINIB S-MALATE
     Dosage: 40 MG, QD
     Route: 048
     Dates: start: 20210902
  4. CABOMETYX [Suspect]
     Active Substance: CABOZANTINIB S-MALATE
     Dosage: 20 MG, QD
     Route: 048
     Dates: end: 20211124
  5. TRICHLORMETHIAZIDE [Concomitant]
     Active Substance: TRICHLORMETHIAZIDE
     Indication: Hypertension
     Dosage: 2 MILLIGRAM, QD
     Route: 048
     Dates: end: 20211201
  6. PRAVASTATIN SODIUM [Concomitant]
     Active Substance: PRAVASTATIN SODIUM
     Indication: Hyperlipidaemia
     Dosage: 10 MG, QD
     Route: 048
  7. AMLODIPINE\TELMISARTAN [Concomitant]
     Active Substance: AMLODIPINE\TELMISARTAN
     Indication: Hypertension
     Dosage: UNK UNK, QD
     Route: 048
  8. URSODIOL [Concomitant]
     Active Substance: URSODIOL
     Indication: Hepatic function abnormal
     Dosage: 50 MG, BID
     Route: 048
  9. HEPARINOID [Concomitant]
     Indication: Prophylaxis
     Dosage: UNK
     Route: 050
     Dates: start: 20210819, end: 20211208

REACTIONS (5)
  - Blood thyroid stimulating hormone increased [Recovered/Resolved]
  - Thyroxine decreased [Recovered/Resolved]
  - Hepatic function abnormal [Recovered/Resolved]
  - Diarrhoea [Recovering/Resolving]
  - Taste disorder [Recovering/Resolving]

NARRATIVE: CASE EVENT DATE: 20210831
